FAERS Safety Report 10363471 (Version 1)
Quarter: 2014Q3

REPORT INFORMATION
  Report Type: Spontaneous
  Country: FR (occurrence: FR)
  Receive Date: 20140805
  Receipt Date: 20140805
  Transmission Date: 20150326
  Serious: Yes (Other)
  Sender: FDA-Public Use
  Company Number: FR-ABBVIE-14P-056-1267333-00

PATIENT
  Age: 2 Year
  Sex: Female

DRUGS (1)
  1. MICROPAKINE [Suspect]
     Active Substance: VALPROIC ACID
     Indication: FEBRILE CONVULSION
     Route: 048
     Dates: start: 201405

REACTIONS (5)
  - Chills [Unknown]
  - Staring [Unknown]
  - Vomiting [Unknown]
  - Slow response to stimuli [Unknown]
  - Petit mal epilepsy [Unknown]

NARRATIVE: CASE EVENT DATE: 201405
